FAERS Safety Report 4828100-2 (Version None)
Quarter: 2005Q4

REPORT INFORMATION
  Report Type: 
  Country: None (occurrence: None)
  Receive Date: 20051114
  Receipt Date: 20051114
  Transmission Date: 20060501
  Serious: Yes (Life-Threatening)
  Sender: FDA-Public Use
  Company Number: None

PATIENT
  Age: 95 Year
  Sex: Female

DRUGS (11)
  1. ZOSYN [Suspect]
     Indication: PNEUMONIA
     Dosage: 2.25 GM Q6H IV
     Route: 042
     Dates: start: 20050727, end: 20050730
  2. DILANTIN [Concomitant]
  3. TYLENOL (CAPLET) [Concomitant]
  4. ATROVENT/PROVENTIL [Concomitant]
  5. NEURONTIN [Concomitant]
  6. MULTI-VITAMIN [Concomitant]
  7. DIGOXIN [Concomitant]
  8. AZTREONAM [Concomitant]
  9. NEUTRA-PHOS [Concomitant]
  10. PREVACID [Concomitant]
  11. CLINDAMYCIN [Concomitant]

REACTIONS (1)
  - THROMBOCYTOPENIA [None]
